FAERS Safety Report 6384284-9 (Version None)
Quarter: 2009Q4

REPORT INFORMATION
  Report Type: 
  Country: None (occurrence: None)
  Receive Date: 20091001
  Receipt Date: 20090921
  Transmission Date: 20100525
  Serious: Yes (Other)
  Sender: FDA-Public Use
  Company Number: GB-MERCK-0807GBR00100B1

PATIENT
  Age: 0 Day
  Sex: Female
  Weight: 1 kg

DRUGS (4)
  1. SINGULAIR [Suspect]
     Indication: ASTHMA
     Route: 064
     Dates: end: 20080701
  2. PREDNISOLONE [Concomitant]
     Route: 064
  3. BUDESONIDE AND FORMOTEROL FUMARATE [Concomitant]
     Route: 064
  4. ALBUTEROL SULFATE [Concomitant]
     Route: 064

REACTIONS (3)
  - MATERNAL DRUGS AFFECTING FOETUS [None]
  - PREMATURE BABY [None]
  - SMALL FOR DATES BABY [None]
